FAERS Safety Report 8967629 (Version 2)
Quarter: 2013Q1

REPORT INFORMATION
  Report Type: Spontaneous
  Country: US (occurrence: None)
  Receive Date: 20121204
  Receipt Date: 20121214
  Transmission Date: 20140127
  Serious: Yes (Other)
  Sender: FDA-Public Use
  Company Number: US-1195378

PATIENT
  Sex: Female

DRUGS (1)
  1. AZOPT 1% [Suspect]
     Indication: GLAUCOMA
     Route: 047
     Dates: end: 20121129

REACTIONS (6)
  - Abdominal discomfort [None]
  - Weight decreased [None]
  - Fear [None]
  - Abdominal pain [None]
  - Decreased appetite [None]
  - Feeling abnormal [None]
